FAERS Safety Report 10366636 (Version 4)
Quarter: 2014Q3

REPORT INFORMATION
  Report Type: Spontaneous
  Country: US (occurrence: US)
  Receive Date: 20140806
  Receipt Date: 20140825
  Transmission Date: 20150326
  Serious: Yes (Other)
  Sender: FDA-Public Use
  Company Number: US-TAKEDA-2014TUS004799

PATIENT
  Age: 66 Year
  Sex: Female
  Weight: 77.98 kg

DRUGS (9)
  1. DEXILANT [Suspect]
     Active Substance: DEXLANSOPRAZOLE
     Indication: BARRETT^S OESOPHAGUS
  2. MAGNESIUM [Concomitant]
     Active Substance: MAGNESIUM
     Dosage: UNK
     Route: 065
  3. CALTRATE WITH D [Concomitant]
     Dosage: UNK
     Route: 065
  4. SOLVADI [Concomitant]
     Indication: HEPATITIS C
     Dosage: UNK
     Route: 065
     Dates: start: 201406
  5. MENS ROGAINE UNSCENTED FORMULA [Concomitant]
     Active Substance: MINOXIDIL
     Indication: ALOPECIA
     Dosage: UNK
     Route: 048
  6. RIBAVIRIN. [Concomitant]
     Active Substance: RIBAVIRIN
     Indication: HEPATITIS C
     Dosage: UNK
     Route: 065
     Dates: start: 20140324
  7. DEXILANT [Suspect]
     Active Substance: DEXLANSOPRAZOLE
     Indication: GASTROOESOPHAGEAL REFLUX DISEASE
     Dosage: 60 MG, QD
     Route: 048
     Dates: start: 20140301
  8. XANAX [Concomitant]
     Active Substance: ALPRAZOLAM
     Indication: INSOMNIA
     Dosage: UNK
     Route: 048
  9. VITAMIN K [Concomitant]
     Active Substance: PHYTONADIONE
     Indication: SUPPLEMENTATION THERAPY
     Dosage: UNK
     Route: 065

REACTIONS (13)
  - Hepatitis C [Not Recovered/Not Resolved]
  - Pain in jaw [Not Recovered/Not Resolved]
  - Myalgia [Recovered/Resolved]
  - Depression [Not Recovered/Not Resolved]
  - Peripheral swelling [Recovered/Resolved]
  - Dehydration [Not Recovered/Not Resolved]
  - Musculoskeletal stiffness [Not Recovered/Not Resolved]
  - Bursitis [Recovered/Resolved]
  - Arthralgia [Not Recovered/Not Resolved]
  - Trigger finger [Recovered/Resolved]
  - Upper-airway cough syndrome [Unknown]
  - Oropharyngeal pain [Not Recovered/Not Resolved]
  - Hypertension [Unknown]

NARRATIVE: CASE EVENT DATE: 20140313
